FAERS Safety Report 14506704 (Version 1)
Quarter: 2018Q1

REPORT INFORMATION
  Report Type: Spontaneous
  Country: CN (occurrence: CN)
  Receive Date: 20180208
  Receipt Date: 20180208
  Transmission Date: 20180509
  Serious: Yes (Hospitalization)
  Sender: FDA-Public Use
  Company Number: CN-JNJFOC-20180208161

PATIENT
  Age: 26 Year
  Sex: Male

DRUGS (2)
  1. REMICADE [Suspect]
     Active Substance: INFLIXIMAB
     Indication: IMMUNODEFICIENCY
     Dosage: 5 MG/KG PER TIME
     Route: 042
  2. REMICADE [Suspect]
     Active Substance: INFLIXIMAB
     Indication: IMMUNODEFICIENCY
     Route: 042
     Dates: start: 2018

REACTIONS (5)
  - Off label use [Unknown]
  - Pancreatectomy [Unknown]
  - Road traffic accident [Recovering/Resolving]
  - Splenectomy [Unknown]
  - Product use in unapproved indication [Unknown]

NARRATIVE: CASE EVENT DATE: 20171223
